FAERS Safety Report 24591925 (Version 1)
Quarter: 2024Q4

REPORT INFORMATION
  Report Type: Spontaneous
  Country: CN (occurrence: CN)
  Receive Date: 20241108
  Receipt Date: 20241108
  Transmission Date: 20250114
  Serious: Yes (Hospitalization)
  Sender: SANOFI AVENTIS
  Company Number: CN-SA-2024SA320543

PATIENT
  Age: 76 Year
  Sex: Male
  Weight: 78 kg

DRUGS (2)
  1. CLOPIDOGREL BISULFATE [Suspect]
     Active Substance: CLOPIDOGREL BISULFATE
     Indication: Peripheral artery occlusion
     Dosage: 75 MG, QD
     Route: 048
     Dates: start: 20240924, end: 20240925
  2. LORATADINE [Concomitant]
     Active Substance: LORATADINE
     Dosage: 75 MG
     Route: 048
     Dates: start: 20240924, end: 20240925

REACTIONS (7)
  - Gastrooesophageal reflux disease [Recovering/Resolving]
  - Dry mouth [Recovering/Resolving]
  - Abdominal discomfort [Recovering/Resolving]
  - Nausea [Recovered/Resolved]
  - Headache [Recovering/Resolving]
  - Dyspepsia [Recovering/Resolving]
  - Vomiting [Recovered/Resolved]

NARRATIVE: CASE EVENT DATE: 20240925
